FAERS Safety Report 15753757 (Version 1)
Quarter: 2018Q4

REPORT INFORMATION
  Report Type: Spontaneous
  Country: DE (occurrence: DE)
  Receive Date: 20181222
  Receipt Date: 20181222
  Transmission Date: 20190205
  Serious: Yes (Death, Other)
  Sender: FDA-Public Use
  Company Number: DE-DRREDDYS-GER/GER/18/0106288

PATIENT
  Age: 73 Year
  Sex: Male

DRUGS (2)
  1. NOVALGIN (METAMIZOLE SODIUM) [Suspect]
     Active Substance: METAMIZOLE SODIUM
     Indication: FRACTURE PAIN
     Dosage: DAILY DOSE: 120 GTT DROP(S) EVERY DAYS
     Route: 048
     Dates: end: 20181128
  2. IBUPROFEN. [Suspect]
     Active Substance: IBUPROFEN
     Indication: FRACTURE PAIN
     Route: 048
     Dates: start: 20181111

REACTIONS (3)
  - Agranulocytosis [Fatal]
  - Stomatitis [Fatal]
  - Tonsillitis [Fatal]

NARRATIVE: CASE EVENT DATE: 20181130
